FAERS Safety Report 15763008 (Version 1)
Quarter: 2018Q4

REPORT INFORMATION
  Report Type: Spontaneous
  Country: CH (occurrence: CH)
  Receive Date: 20181226
  Receipt Date: 20181226
  Transmission Date: 20190205
  Serious: Yes (Hospitalization, Other)
  Sender: FDA-Public Use
  Company Number: CH-ELI_LILLY_AND_COMPANY-CH201812009278

PATIENT
  Age: 60 Year
  Sex: Male

DRUGS (7)
  1. ZYPREXA [Suspect]
     Active Substance: OLANZAPINE
     Indication: PRODUCT USED FOR UNKNOWN INDICATION
     Dosage: 10 MG, IN THE MORNING
     Route: 065
  2. QUILONORM [LITHIUM CARBONATE] [Interacting]
     Active Substance: LITHIUM CARBONATE
     Indication: DEPRESSION
     Dosage: 450 MG, IN THE EVENING
     Route: 065
  3. NOVALGIN (METAMIZOLE SODIUM) [Concomitant]
     Active Substance: METAMIZOLE SODIUM
     Indication: PRODUCT USED FOR UNKNOWN INDICATION
     Dosage: 40 DF, EVERY 6 HRS
     Route: 048
  4. PARAGOL N [Concomitant]
     Indication: PRODUCT USED FOR UNKNOWN INDICATION
     Dosage: 20 ML, BID
     Route: 065
  5. DAFALGAN [Concomitant]
     Active Substance: ACETAMINOPHEN
     Indication: PRODUCT USED FOR UNKNOWN INDICATION
     Dosage: 1 G, UNKNOWN
     Route: 048
  6. ZYPREXA [Interacting]
     Active Substance: OLANZAPINE
     Dosage: 10 MG, IN THE EVENING
     Route: 065
  7. QUILONORM [LITHIUM CARBONATE] [Interacting]
     Active Substance: LITHIUM CARBONATE
     Indication: BIPOLAR DISORDER
     Dosage: 450 MG, IN THE MORNING
     Route: 065

REACTIONS (14)
  - Electrocardiogram QT prolonged [Unknown]
  - Aggression [Recovering/Resolving]
  - Drug interaction [Unknown]
  - Insomnia [Recovering/Resolving]
  - Myoclonus [Recovering/Resolving]
  - Chills [Unknown]
  - Antipsychotic drug level increased [Unknown]
  - Pneumonia [Unknown]
  - Delirium [Recovering/Resolving]
  - Prescribed overdose [Unknown]
  - Tremor [Recovering/Resolving]
  - Polydipsia [Recovering/Resolving]
  - Constipation [Recovering/Resolving]
  - General physical health deterioration [Recovering/Resolving]

NARRATIVE: CASE EVENT DATE: 20181128
